FAERS Safety Report 12078865 (Version 3)
Quarter: 2016Q1

REPORT INFORMATION
  Report Type: Report from Study
  Country: BR (occurrence: BR)
  Receive Date: 20160216
  Receipt Date: 20160309
  Transmission Date: 20160526
  Serious: Yes (Hospitalization, Other)
  Sender: FDA-Public Use
  Company Number: PHHY2014BR142262

PATIENT
  Sex: Female
  Weight: 59 kg

DRUGS (2)
  1. AROMASIN [Concomitant]
     Active Substance: EXEMESTANE
     Indication: PRODUCT USED FOR UNKNOWN INDICATION
     Route: 065
  2. AFINITOR [Suspect]
     Active Substance: EVEROLIMUS
     Indication: BREAST CANCER
     Dosage: 1 DF, QD
     Route: 065

REACTIONS (9)
  - Wound [Unknown]
  - Lip disorder [Unknown]
  - Road traffic accident [Unknown]
  - Tongue ulceration [Unknown]
  - Aphthous ulcer [Unknown]
  - Mouth injury [Unknown]
  - Hepatic neoplasm [Unknown]
  - Second primary malignancy [Unknown]
  - Drug ineffective [Unknown]
